FAERS Safety Report 6991908-1 (Version None)
Quarter: 2010Q3

REPORT INFORMATION
  Report Type: 
  Country: None (occurrence: None)
  Receive Date: 20100915
  Receipt Date: 20100915
  Transmission Date: 20110219
  Serious: Yes (Hospitalization)
  Sender: FDA-Public Use
  Company Number: None

PATIENT
  Age: 74 Year
  Sex: Female
  Weight: 77.1115 kg

DRUGS (2)
  1. FERAHEME [Suspect]
     Indication: IRON DEFICIENCY
     Dosage: 510 MG ONE DOSE IV BOLUS
     Route: 040
     Dates: start: 20100909, end: 20100909
  2. FERAHEME [Suspect]
     Indication: NEPHROGENIC ANAEMIA
     Dosage: 510 MG ONE DOSE IV BOLUS
     Route: 040
     Dates: start: 20100909, end: 20100909

REACTIONS (6)
  - DIARRHOEA [None]
  - HYPOTENSION [None]
  - NAUSEA [None]
  - RECTAL HAEMORRHAGE [None]
  - TACHYCARDIA [None]
  - VOMITING [None]
